FAERS Safety Report 20138260 (Version 1)
Quarter: 2021Q4

REPORT INFORMATION
  Report Type: Spontaneous
  Country: US (occurrence: US)
  Receive Date: 20211202
  Receipt Date: 20211202
  Transmission Date: 20220303
  Serious: Yes (Other)
  Sender: FDA-Public Use
  Company Number: US-AMGEN-USASP2021185388

PATIENT
  Age: 60 Year
  Sex: Female
  Weight: 40.363 kg

DRUGS (3)
  1. AIMOVIG [Suspect]
     Active Substance: ERENUMAB-AOOE
     Indication: Migraine
     Dosage: UNK
     Route: 065
  2. NURTEC ODT [Suspect]
     Active Substance: RIMEGEPANT SULFATE
     Indication: Migraine
     Dosage: UNK
     Route: 048
     Dates: start: 2020
  3. NURTEC ODT [Suspect]
     Active Substance: RIMEGEPANT SULFATE
     Indication: Constipation
     Dosage: 75 MILLIGRAM
     Route: 048
     Dates: start: 202109

REACTIONS (2)
  - Ileus paralytic [Unknown]
  - Constipation [Not Recovered/Not Resolved]
